FAERS Safety Report 20651464 (Version 2)
Quarter: 2022Q3

REPORT INFORMATION
  Report Type: Report from Study
  Country: BR (occurrence: BR)
  Receive Date: 20220330
  Receipt Date: 20220909
  Transmission Date: 20221027
  Serious: Yes (Hospitalization)
  Sender: FDA-Public Use
  Company Number: BR-JNJFOC-20220345786

PATIENT
  Sex: Female
  Weight: 36 kg

DRUGS (1)
  1. INFLIXIMAB [Suspect]
     Active Substance: INFLIXIMAB
     Indication: Colitis ulcerative
     Route: 041
     Dates: start: 2021

REACTIONS (3)
  - Gastrointestinal infection [Unknown]
  - Colitis ulcerative [Unknown]
  - Underdose [Unknown]
